FAERS Safety Report 13143653 (Version 1)
Quarter: 2017Q1

REPORT INFORMATION
  Report Type: Spontaneous
  Country: US (occurrence: US)
  Receive Date: 20170124
  Receipt Date: 20170124
  Transmission Date: 20170428
  Serious: No
  Sender: FDA-Public Use
  Company Number: US-BAUSCH-BL-2016-016545

PATIENT
  Age: 72 Year
  Sex: Male

DRUGS (2)
  1. ALAWAY [Suspect]
     Active Substance: KETOTIFEN FUMARATE
     Indication: EYE IRRITATION
  2. ALAWAY [Suspect]
     Active Substance: KETOTIFEN FUMARATE
     Indication: DRY EYE
     Dosage: INSTILLED INTO BOTH EYES AS NEEDED
     Route: 047
     Dates: start: 20160706, end: 20160706

REACTIONS (2)
  - Eye irritation [Recovered/Resolved]
  - Off label use [Recovered/Resolved]

NARRATIVE: CASE EVENT DATE: 20160706
